FAERS Safety Report 9351456 (Version 2)
Quarter: 2013Q2

REPORT INFORMATION
  Report Type: Other
  Country: DK (occurrence: DK)
  Receive Date: 20130617
  Receipt Date: 20130628
  Transmission Date: 20140414
  Serious: Yes (Hospitalization, Other)
  Sender: FDA-Public Use
  Company Number: DK-WATSON-2013-10283

PATIENT
  Age: 60 Year
  Sex: Male

DRUGS (7)
  1. LOSARTAN POTASSIUM (UNKNOWN) [Suspect]
     Indication: HYPERTENSION
     Dosage: 100 MG, DAILY
     Route: 065
     Dates: end: 20130406
  2. EXFORGE HCT [Suspect]
     Indication: HYPERTENSION
     Dosage: 1 DF, DAILY
     Route: 065
     Dates: start: 20130406
  3. OTRIVIN [Suspect]
     Indication: NASAL CONGESTION
     Dosage: 75 MG, DAILY
     Route: 065
  4. SIMVASTATIN SANDOZ [Suspect]
     Indication: BLOOD CHOLESTEROL INCREASED
     Dosage: 20 MG, DAILY
     Route: 065
  5. LOPRESSOR [Suspect]
     Indication: HYPERTENSION
     Dosage: 100 MG, DAILY
     Route: 065
     Dates: start: 20130406
  6. LOPRESSOR [Suspect]
     Dosage: 75 MG, DAILY
     Route: 065
     Dates: start: 2008
  7. ASPIRIN [Concomitant]
     Indication: PRODUCT USED FOR UNKNOWN INDICATION
     Dosage: UNK, UNKNOWN
     Route: 065
     Dates: start: 201304

REACTIONS (21)
  - Disturbance in attention [Unknown]
  - Dizziness [Unknown]
  - Fatigue [Unknown]
  - Depression [Unknown]
  - Discomfort [Unknown]
  - Drug effect decreased [Unknown]
  - Hypertension [Unknown]
  - Syncope [Unknown]
  - Headache [Unknown]
  - Chest pain [Unknown]
  - Nausea [Unknown]
  - Pain in extremity [Unknown]
  - Myalgia [Unknown]
  - Palpitations [Unknown]
  - Epistaxis [Unknown]
  - Hyperhidrosis [Unknown]
  - Visual impairment [Unknown]
  - Drug interaction [Unknown]
  - Drug ineffective [Not Recovered/Not Resolved]
  - Peripheral coldness [Unknown]
  - Nasopharyngitis [Unknown]
